FAERS Safety Report 18205127 (Version 5)
Quarter: 2021Q2

REPORT INFORMATION
  Report Type: Report from Study
  Country: IT (occurrence: IT)
  Receive Date: 20200828
  Receipt Date: 20210503
  Transmission Date: 20210717
  Serious: Yes (Hospitalization)
  Sender: FDA-Public Use
  Company Number: IT-ROCHE-2663684

PATIENT
  Age: 71 Year
  Sex: Female
  Weight: 70 kg

DRUGS (22)
  1. SOLDESAM [Concomitant]
     Active Substance: DEXAMETHASONE
     Dates: start: 20200630, end: 20200630
  2. LOPERAMIDE [Concomitant]
     Active Substance: LOPERAMIDE
     Dates: start: 20200406, end: 20200710
  3. PALONOSETRON. [Concomitant]
     Active Substance: PALONOSETRON HYDROCHLORIDE
     Dates: start: 20200608, end: 20200608
  4. SOLDESAM [Concomitant]
     Active Substance: DEXAMETHASONE
     Dates: start: 20200518, end: 20200518
  5. PARACETAMOL [Concomitant]
     Active Substance: ACETAMINOPHEN
     Dates: start: 20200518
  6. ETOPOSIDE. [Suspect]
     Active Substance: ETOPOSIDE
     Indication: SMALL CELL LUNG CANCER
     Dosage: 100 MILLIGRAMS PER SQUARE METER (MG/M^2) ON DAYS 1 THROUGH 3 OF EACH CYCLE DURING THE INDUCTION PHAS
     Route: 042
     Dates: start: 20200406
  7. CARBOPLATIN. [Suspect]
     Active Substance: CARBOPLATIN
     Indication: SMALL CELL LUNG CANCER
     Dosage: AUC OF 5 MG/ML/MIN?DATE OF LAST DOSE ADMINISTERED CARBOPLATIN 345 MG PRIOR TO SAE ONSET: 20/JUL/2020
     Route: 042
     Dates: start: 20200406
  8. PALONOSETRON. [Concomitant]
     Active Substance: PALONOSETRON HYDROCHLORIDE
     Dates: start: 20200629, end: 20200629
  9. SOLDESAM [Concomitant]
     Active Substance: DEXAMETHASONE
     Dates: start: 20200629, end: 20200629
  10. ZARZIO [Concomitant]
     Active Substance: FILGRASTIM
     Dates: start: 20200525, end: 20200529
  11. ATEZOLIZUMAB. [Suspect]
     Active Substance: ATEZOLIZUMAB
     Indication: SMALL CELL LUNG CANCER
     Dosage: DATE OF MOST RECENT DOSE OF ATEZOLIZUMAB PRIOR TO SAE ONSET: 10/AUG/2020 AT 11.50
     Route: 041
     Dates: start: 20200406
  12. PLASIL [Concomitant]
     Active Substance: METOCLOPRAMIDE HYDROCHLORIDE
     Dates: start: 20200406, end: 20200810
  13. ZARZIO [Concomitant]
     Active Substance: FILGRASTIM
     Indication: PROPHYLAXIS
     Dates: start: 20200504, end: 20200508
  14. SOLDESAM [Concomitant]
     Active Substance: DEXAMETHASONE
     Dates: start: 20200608, end: 20200608
  15. DIBASE [Concomitant]
     Active Substance: CHOLECALCIFEROL
     Dates: start: 20200427
  16. PALONOSETRON. [Concomitant]
     Active Substance: PALONOSETRON HYDROCHLORIDE
     Indication: PREMEDICATION
     Dates: start: 20200427, end: 20200427
  17. SOLDESAM [Concomitant]
     Active Substance: DEXAMETHASONE
     Dates: start: 20200609, end: 20200610
  18. ZARZIO [Concomitant]
     Active Substance: FILGRASTIM
     Dates: start: 20200616
  19. AMLODIPINE [Concomitant]
     Active Substance: AMLODIPINE BESYLATE
     Dates: start: 201007
  20. PALONOSETRON. [Concomitant]
     Active Substance: PALONOSETRON HYDROCHLORIDE
     Dates: start: 20200518, end: 20200518
  21. SOLDESAM [Concomitant]
     Active Substance: DEXAMETHASONE
     Indication: PREMEDICATION
     Dates: start: 20200428, end: 20200429
  22. SOLDESAM [Concomitant]
     Active Substance: DEXAMETHASONE
     Dates: start: 20200519, end: 20200519

REACTIONS (1)
  - Acute kidney injury [Recovered/Resolved]

NARRATIVE: CASE EVENT DATE: 20200819
